FAERS Safety Report 5336332-2 (Version None)
Quarter: 2007Q2

REPORT INFORMATION
  Report Type: 
  Country: None (occurrence: None)
  Receive Date: 20070523
  Receipt Date: 20070508
  Transmission Date: 20071010
  Serious: Yes (Other)
  Sender: FDA-Public Use
  Company Number: T200700473

PATIENT
  Age: 33 Year
  Sex: Female
  Weight: 117.9 kg

DRUGS (8)
  1. METHADOSE [Suspect]
     Indication: PAIN
     Dosage: 40 MG, TID (Q 8 HRS), ORAL
     Route: 048
     Dates: start: 20001019, end: 20010201
  2. METHADOSE [Suspect]
     Indication: PAIN
     Dosage: 10 MG, BID (Q 12 HRS), ORAL
     Route: 048
     Dates: start: 20010201, end: 20020501
  3. ACTIQ [Suspect]
     Indication: BREAKTHROUGH PAIN
     Dosage: 200 UG, QID, OTHER
     Route: 050
     Dates: start: 20001201
  4. PROMETHAZINE [Concomitant]
  5. REGLAN  /00041901/ (METOCLOPRAMIDE) [Concomitant]
  6. RANITIDINE [Concomitant]
  7. DEPO-PROVERA [Concomitant]
  8. LIDOCAINE [Concomitant]

REACTIONS (3)
  - LYMPHOEDEMA [None]
  - TOOTH LOSS [None]
  - WEIGHT INCREASED [None]
